FAERS Safety Report 24577415 (Version 1)
Quarter: 2024Q4

REPORT INFORMATION
  Report Type: Spontaneous
  Country: US (occurrence: US)
  Receive Date: 20241104
  Receipt Date: 20241104
  Transmission Date: 20250115
  Serious: No
  Sender: PERRIGO
  Company Number: US-PERRIGO-24US003809

PATIENT
  Age: 82 Year

DRUGS (1)
  1. POLYETHYLENE GLYCOL 3350 [Suspect]
     Active Substance: POLYETHYLENE GLYCOL 3350
     Indication: Constipation
     Dosage: UNKNOWN, QAM
     Route: 048
     Dates: start: 202310

REACTIONS (3)
  - Blood potassium increased [Unknown]
  - Incorrect dose administered [Unknown]
  - Incorrect product administration duration [Unknown]

NARRATIVE: CASE EVENT DATE: 20231001
